FAERS Safety Report 13586819 (Version 1)
Quarter: 2017Q2

REPORT INFORMATION
  Report Type: Spontaneous
  Country: US (occurrence: US)
  Receive Date: 20170525
  Receipt Date: 20170525
  Transmission Date: 20170830
  Serious: Yes (Life-Threatening, Hospitalization)
  Sender: FDA-Public Use
  Company Number: None

PATIENT
  Age: 98 Year
  Sex: Male
  Weight: 92.5 kg

DRUGS (1)
  1. ASPIRIN/DIPYRIDAMOLE [Suspect]
     Active Substance: ASPIRIN\DIPYRIDAMOLE
     Indication: CEREBROVASCULAR ACCIDENT PROPHYLAXIS
     Route: 048
     Dates: start: 20130806, end: 20170320

REACTIONS (6)
  - Proctalgia [None]
  - Haemoglobin decreased [None]
  - Hypertension [None]
  - Hypotension [None]
  - Gastric haemorrhage [None]
  - Confusional state [None]

NARRATIVE: CASE EVENT DATE: 20170320
